FAERS Safety Report 9431566 (Version 2)
Quarter: 2013Q3

REPORT INFORMATION
  Report Type: Spontaneous
  Country: US (occurrence: US)
  Receive Date: 20130731
  Receipt Date: 20130823
  Transmission Date: 20140515
  Serious: Yes (Other)
  Sender: FDA-Public Use
  Company Number: US-AMGEN-USASP2013053208

PATIENT
  Age: 67 Year
  Sex: Female
  Weight: 72.56 kg

DRUGS (5)
  1. XGEVA [Suspect]
     Indication: BREAST CANCER METASTATIC
     Dosage: 120 UNK, UNK
     Route: 058
  2. IRON [Concomitant]
  3. FASLODEX                           /01285001/ [Concomitant]
  4. LEXAPRO [Concomitant]
  5. CORTICOSTEROID NOS [Concomitant]

REACTIONS (1)
  - Pelvic fracture [Not Recovered/Not Resolved]
